FAERS Safety Report 5488613-X (Version None)
Quarter: 2007Q4

REPORT INFORMATION
  Report Type: 
  Country: None (occurrence: None)
  Receive Date: 20071001
  Receipt Date: 20061128
  Transmission Date: 20080405
  Serious: Yes (Other)
  Sender: FDA-Public Use
  Company Number: 200615842BWH

PATIENT
  Age: 58 Year
  Sex: Male
  Weight: 72.5755 kg

DRUGS (9)
  1. CIPRO [Suspect]
     Indication: EPIDIDYMITIS
     Dosage: ORAL, 250 MG, BID, ORAL; PRN, ORAL
     Route: 047
     Dates: start: 20020701, end: 20020722
  2. CIPRO [Suspect]
     Indication: INFECTION
     Dosage: ORAL, 250 MG, BID, ORAL; PRN, ORAL
     Route: 047
     Dates: start: 20020701, end: 20020722
  3. CIPRO [Suspect]
     Indication: EPIDIDYMITIS
     Dosage: ORAL, 250 MG, BID, ORAL; PRN, ORAL
     Route: 047
     Dates: start: 20010401
  4. CIPRO [Suspect]
     Indication: INFECTION
     Dosage: ORAL, 250 MG, BID, ORAL; PRN, ORAL
     Route: 047
     Dates: start: 20010401
  5. CIPRO [Suspect]
     Indication: EPIDIDYMITIS
     Dosage: ORAL, 250 MG, BID, ORAL; PRN, ORAL
     Route: 047
     Dates: start: 20030401
  6. CIPRO [Suspect]
     Indication: INFECTION
     Dosage: ORAL, 250 MG, BID, ORAL; PRN, ORAL
     Route: 047
     Dates: start: 20030401
  7. CIPRO [Suspect]
     Indication: EPIDIDYMITIS
     Dosage: ORAL, 250 MG, BID, ORAL; PRN, ORAL
     Route: 047
     Dates: start: 20030501
  8. CIPRO [Suspect]
     Indication: INFECTION
     Dosage: ORAL, 250 MG, BID, ORAL; PRN, ORAL
     Route: 047
     Dates: start: 20030501
  9. ANTI-INFLAMMATORY MEDICATION (NOS) [Concomitant]

REACTIONS (2)
  - ARTHRALGIA [None]
  - TENDON RUPTURE [None]
